FAERS Safety Report 17406973 (Version 1)
Quarter: 2020Q1

REPORT INFORMATION
  Report Type: Spontaneous
  Country: US (occurrence: US)
  Receive Date: 20200211
  Receipt Date: 20200211
  Transmission Date: 20200409
  Serious: Yes (Hospitalization)
  Sender: FDA-Public Use
  Company Number: None

PATIENT
  Age: 56 Year
  Sex: Female

DRUGS (7)
  1. GABAPENTIN. [Concomitant]
     Active Substance: GABAPENTIN
     Dates: start: 20180525
  2. MAGNESIUM [Concomitant]
     Active Substance: MAGNESIUM
     Dates: start: 20200211
  3. GLATIRAMER [Suspect]
     Active Substance: GLATIRAMER
     Dosage: ?          OTHER FREQUENCY:3 TIMES PER WEEK;?
     Route: 058
     Dates: start: 20190126
  4. VITAMIN D3 [Concomitant]
     Active Substance: CHOLECALCIFEROL
     Dates: start: 20200211
  5. OMEGA-3 ACIDS [Concomitant]
     Active Substance: OMEGA-3 FATTY ACIDS
     Dates: start: 20200211
  6. MULTI VITAMIN [Concomitant]
     Active Substance: VITAMINS
     Dates: start: 20180525
  7. TURMERIC [Concomitant]
     Active Substance: HERBALS\TURMERIC
     Dates: start: 20200211

REACTIONS (4)
  - Wrong technique in product usage process [None]
  - Device difficult to use [None]
  - Muscle strain [None]
  - Pain in extremity [None]

NARRATIVE: CASE EVENT DATE: 20200203
